FAERS Safety Report 17915259 (Version 1)
Quarter: 2020Q2

REPORT INFORMATION
  Report Type: Spontaneous
  Country: US (occurrence: US)
  Receive Date: 20200619
  Receipt Date: 20200619
  Transmission Date: 20200714
  Serious: No
  Sender: FDA-Public Use
  Company Number: US-ITALFARMACO SPA-2086106

PATIENT
  Age: 63 Year
  Sex: Female

DRUGS (3)
  1. TIGLUTIK [Suspect]
     Active Substance: RILUZOLE
     Indication: AMYOTROPHIC LATERAL SCLEROSIS
     Dates: start: 20200408
  2. NUEDEXTA [Concomitant]
     Active Substance: DEXTROMETHORPHAN HYDROBROMIDE\QUINIDINE SULFATE
  3. RADICAVA [Concomitant]
     Active Substance: EDARAVONE

REACTIONS (2)
  - Hypoaesthesia oral [Not Recovered/Not Resolved]
  - Nausea [Not Recovered/Not Resolved]
